FAERS Safety Report 22931969 (Version 2)
Quarter: 2023Q4

REPORT INFORMATION
  Report Type: Spontaneous
  Country: US (occurrence: None)
  Receive Date: 20230912
  Receipt Date: 20231025
  Transmission Date: 20240110
  Serious: Yes (Other)
  Sender: FDA-Public Use
  Company Number: 2023A199630

PATIENT

DRUGS (1)
  1. SYMBICORT [Suspect]
     Active Substance: BUDESONIDE\FORMOTEROL FUMARATE DIHYDRATE
     Dosage: 80 UG, UNKNOWN UNKNOWN
     Route: 055

REACTIONS (10)
  - Lung disorder [Unknown]
  - Oxygen saturation decreased [Unknown]
  - Stress [Unknown]
  - Visual impairment [Unknown]
  - Dyspnoea [Unknown]
  - Incorrect dose administered by device [Unknown]
  - Drug dose omission by device [Unknown]
  - Device delivery system issue [Unknown]
  - Product use in unapproved indication [Unknown]
  - Device use issue [Unknown]
